FAERS Safety Report 9785302 (Version 1)
Quarter: 2013Q4

REPORT INFORMATION
  Report Type: Spontaneous
  Country: FR (occurrence: FR)
  Receive Date: 20131227
  Receipt Date: 20131227
  Transmission Date: 20140711
  Serious: Yes (Life-Threatening, Hospitalization)
  Sender: FDA-Public Use
  Company Number: FR-JNJFOC-20131215589

PATIENT
  Age: 46 Year
  Sex: Female

DRUGS (1)
  1. EFFIPREV [Suspect]
     Indication: CONTRACEPTION
     Route: 048
     Dates: start: 200007, end: 200908

REACTIONS (1)
  - Ischaemic stroke [Recovered/Resolved with Sequelae]
